FAERS Safety Report 7347082-5 (Version None)
Quarter: 2011Q1

REPORT INFORMATION
  Report Type: 
  Country: None (occurrence: None)
  Receive Date: 20110311
  Receipt Date: 20110308
  Transmission Date: 20110831
  Serious: Yes (Death)
  Sender: FDA-Public Use
  Company Number: MX-SANOFI-AVENTIS-2011SA014298

PATIENT
  Age: 74 Year
  Sex: Male

DRUGS (1)
  1. ALFUZOSIN HYDROCHLORIDE [Suspect]
     Route: 048
     Dates: start: 20080101, end: 20101229

REACTIONS (2)
  - DEATH [None]
  - ASPHYXIA [None]
